FAERS Safety Report 7525650-5 (Version None)
Quarter: 2011Q2

REPORT INFORMATION
  Report Type: 
  Country: None (occurrence: None)
  Receive Date: 20110606
  Receipt Date: 20110524
  Transmission Date: 20111010
  Serious: Yes (Other)
  Sender: FDA-Public Use
  Company Number: PHHY2011US46101

PATIENT
  Sex: Male

DRUGS (2)
  1. NEORAL [Suspect]
     Indication: LIVER TRANSPLANT
     Dosage: 175 MG, BID
     Route: 048
     Dates: start: 20110215
  2. MYFORTIC [Suspect]
     Indication: LIVER TRANSPLANT
     Dosage: 360 MG, BID
     Route: 048
     Dates: start: 20110215

REACTIONS (1)
  - BLINDNESS [None]
